FAERS Safety Report 5618690-4 (Version None)
Quarter: 2008Q1

REPORT INFORMATION
  Report Type: 
  Country: None (occurrence: None)
  Receive Date: 20080205
  Receipt Date: 20080205
  Transmission Date: 20080703
  Serious: No
  Sender: FDA-Public Use
  Company Number: None

PATIENT
  Age: 31 Year
  Sex: Female
  Weight: 52.1637 kg

DRUGS (2)
  1. NARDIL [Suspect]
     Indication: ANXIETY
     Dosage: 15MG 2 TIMES A DAY PO
     Route: 048
  2. CLONAZEPAM [Concomitant]

REACTIONS (2)
  - GASTROOESOPHAGEAL REFLUX DISEASE [None]
  - HIATUS HERNIA [None]
